FAERS Safety Report 20950416 (Version 1)
Quarter: 2022Q2

REPORT INFORMATION
  Report Type: Spontaneous
  Country: US (occurrence: US)
  Receive Date: 20220613
  Receipt Date: 20220613
  Transmission Date: 20220721
  Serious: Yes (Other)
  Sender: FDA-Public Use
  Company Number: US-drreddys-LIT/USA/22/0151027

PATIENT
  Age: 78 Year
  Sex: Male

DRUGS (8)
  1. DONEPEZIL HYDROCHLORIDE [Suspect]
     Active Substance: DONEPEZIL HYDROCHLORIDE
     Indication: Dementia with Lewy bodies
     Route: 048
  2. QUETIAPINE FUMARATE [Suspect]
     Active Substance: QUETIAPINE FUMARATE
     Indication: Dementia with Lewy bodies
  3. OLANZAPINE [Suspect]
     Active Substance: OLANZAPINE
     Indication: Dementia with Lewy bodies
  4. LORAZEPAM [Suspect]
     Active Substance: LORAZEPAM
     Indication: Dementia with Lewy bodies
  5. ZOLPIDEM [Suspect]
     Active Substance: ZOLPIDEM TARTRATE
     Indication: Dementia with Lewy bodies
  6. RIVASTIGMINE TARTRATE [Suspect]
     Active Substance: RIVASTIGMINE TARTRATE
     Indication: Dementia with Lewy bodies
  7. BUSPIRONE [Suspect]
     Active Substance: BUSPIRONE HYDROCHLORIDE
     Indication: Dementia with Lewy bodies
  8. MIRTAZAPINE [Suspect]
     Active Substance: MIRTAZAPINE
     Indication: Dementia with Lewy bodies

REACTIONS (2)
  - Drug intolerance [Recovered/Resolved]
  - Treatment failure [Unknown]
